FAERS Safety Report 21891021 (Version 1)
Quarter: 2023Q1

REPORT INFORMATION
  Report Type: Spontaneous
  Country: US (occurrence: None)
  Receive Date: 20230119
  Receipt Date: 20230119
  Transmission Date: 20230418
  Serious: No
  Sender: FDA-Public Use
  Company Number: None

PATIENT
  Age: 55 Year
  Sex: Male

DRUGS (1)
  1. SILDENAFIL [Suspect]
     Active Substance: SILDENAFIL
     Dosage: FREQUENCY : DAILY;?
     Route: 048

REACTIONS (3)
  - Erectile dysfunction [None]
  - Drug ineffective [None]
  - Product counterfeit [None]
